FAERS Safety Report 10056227 (Version 1)
Quarter: 2014Q2

REPORT INFORMATION
  Report Type: Spontaneous
  Country: GB (occurrence: GB)
  Receive Date: 20140403
  Receipt Date: 20140403
  Transmission Date: 20141212
  Serious: Yes (Hospitalization)
  Sender: FDA-Public Use
  Company Number: GB-GALDERMA-GB14001110

PATIENT
  Sex: Female

DRUGS (5)
  1. DOXYCYCLINE [Suspect]
  2. AMOXICILLIN [Suspect]
  3. CEFALEXIN [Suspect]
  4. TAZOCIN [Suspect]
  5. TRIMETHOPRIM [Suspect]

REACTIONS (1)
  - Clostridium difficile infection [Recovered/Resolved]
